FAERS Safety Report 7040675-4 (Version None)
Quarter: 2010Q4

REPORT INFORMATION
  Report Type: 
  Country: None (occurrence: None)
  Receive Date: 20101013
  Receipt Date: 20100412
  Transmission Date: 20110411
  Serious: Yes (Hospitalization, Other)
  Sender: FDA-Public Use
  Company Number: US-ASTRAZENECA-2009UW19578

PATIENT
  Age: 12356 Day
  Sex: Male

DRUGS (15)
  1. SEROQUEL [Suspect]
     Dosage: 50 MG-400 MG
     Route: 048
     Dates: start: 20070321
  2. LEXAPRO [Concomitant]
     Dates: start: 20060223
  3. PHENYTOIN EX [Concomitant]
     Dosage: 100 MG-400 MG
     Dates: start: 20060313
  4. PRILOSEC [Concomitant]
     Dates: start: 20060714
  5. PROMETHAZINE [Concomitant]
     Dates: start: 20060828
  6. ATENOLOL [Concomitant]
     Dates: start: 20061218
  7. EFFEXOR XR [Concomitant]
     Dates: start: 20070118
  8. LORAZEPAM [Concomitant]
     Dates: start: 20070321
  9. TEMAZEPAM [Concomitant]
     Dates: start: 20070321
  10. LAMICTAL [Concomitant]
     Dosage: 25 MG-100 MG
     Dates: start: 20070530
  11. PROPRANOLOL [Concomitant]
     Dates: start: 20070530
  12. APAP W/ CODEINE [Concomitant]
     Dosage: 300-30 MG
     Dates: start: 20051121
  13. ACETAMINOPHEN AND HYDROCODONE BITARTRATE [Concomitant]
     Dates: start: 20060828
  14. CLONAZEPAM [Concomitant]
     Dates: start: 20090301
  15. CARBAMAZEPINE [Concomitant]
     Dates: start: 20090301

REACTIONS (3)
  - DIABETES MELLITUS [None]
  - MULTIPLE DRUG OVERDOSE INTENTIONAL [None]
  - SUICIDE ATTEMPT [None]
